FAERS Safety Report 6983488-1 (Version None)
Quarter: 2010Q3

REPORT INFORMATION
  Report Type: 
  Country: None (occurrence: None)
  Receive Date: 20100914
  Receipt Date: 20080811
  Transmission Date: 20110219
  Serious: No
  Sender: FDA-Public Use
  Company Number: US-WYE-H05034008

PATIENT
  Sex: Female
  Weight: 47.22 kg

DRUGS (8)
  1. ADVIL LIQUI-GELS [Suspect]
     Indication: ARTHRALGIA
     Route: 048
     Dates: start: 20080201, end: 20080301
  2. MIACALCIN [Concomitant]
  3. LEVOTHYROXINE SODIUM [Concomitant]
  4. ASPIRIN [Concomitant]
  5. ASCORBIC ACID [Concomitant]
  6. ERGOCALCIFEROL [Concomitant]
  7. CALTRATE 600 PLUS CHEWABLE [Concomitant]
  8. ATENOLOL [Concomitant]

REACTIONS (2)
  - HAEMORRHAGE [None]
  - VEIN DISORDER [None]
